FAERS Safety Report 10513796 (Version 3)
Quarter: 2014Q4

REPORT INFORMATION
  Report Type: Spontaneous
  Country: US (occurrence: US)
  Receive Date: 20141013
  Receipt Date: 20141212
  Transmission Date: 20150528
  Serious: Yes (Death, Hospitalization)
  Sender: FDA-Public Use
  Company Number: US-PFIZER INC-2014278335

PATIENT
  Age: 72 Year
  Sex: Male

DRUGS (1)
  1. XALKORI [Suspect]
     Active Substance: CRIZOTINIB
     Indication: NON-SMALL CELL LUNG CANCER STAGE IV
     Dosage: 250 MG, 2X/DAY
     Route: 048
     Dates: start: 20140919, end: 20140924

REACTIONS (3)
  - Disseminated intravascular coagulation [Fatal]
  - Deep vein thrombosis [Fatal]
  - Sepsis [Fatal]

NARRATIVE: CASE EVENT DATE: 2014
